FAERS Safety Report 10346093 (Version 1)
Quarter: 2014Q3

REPORT INFORMATION
  Report Type: Report from Study
  Country: US (occurrence: US)
  Receive Date: 20140728
  Receipt Date: 20140728
  Transmission Date: 20150326
  Serious: Yes (Other)
  Sender: FDA-Public Use
  Company Number: PHEH2014US014912

PATIENT
  Sex: Female

DRUGS (6)
  1. GILENYA [Suspect]
     Active Substance: FINGOLIMOD HYDROCHLORIDE
     Indication: RELAPSING-REMITTING MULTIPLE SCLEROSIS
     Dosage: 0.5 MG, QD
     Route: 048
  2. PREDNISONE. [Concomitant]
     Active Substance: PREDNISONE
  3. INSULIN [Concomitant]
     Active Substance: INSULIN NOS
     Indication: TYPE 1 DIABETES MELLITUS
  4. PRENATAL VITAMINS [Concomitant]
     Active Substance: VITAMINS
  5. LORTAB [Concomitant]
     Active Substance: ACETAMINOPHEN\HYDROCODONE BITARTRATE
  6. MEDROL [Concomitant]
     Active Substance: METHYLPREDNISOLONE

REACTIONS (10)
  - Neuralgia [Unknown]
  - CSF oligoclonal band present [Unknown]
  - Blood immunoglobulin G increased [Unknown]
  - Migraine [Recovering/Resolving]
  - Hypoaesthesia [Unknown]
  - Stillbirth [Unknown]
  - Paraesthesia [Unknown]
  - Maternal exposure during pregnancy [Unknown]
  - Optic neuritis [Unknown]
  - Central nervous system lesion [Unknown]
